FAERS Safety Report 4976891-2 (Version None)
Quarter: 2006Q2

REPORT INFORMATION
  Report Type: 
  Country: None (occurrence: None)
  Receive Date: 20060412
  Receipt Date: 20060330
  Transmission Date: 20061013
  Serious: Yes (Hospitalization)
  Sender: FDA-Public Use
  Company Number: B0419334A

PATIENT
  Age: 32 Year
  Sex: Male

DRUGS (3)
  1. RETROVIR [Suspect]
     Indication: HIV INFECTION
  2. EPIVIR [Suspect]
     Indication: HIV INFECTION
  3. EFAVIRENZ [Suspect]
     Indication: HIV INFECTION

REACTIONS (13)
  - CD4 LYMPHOCYTES INCREASED [None]
  - CONFUSIONAL STATE [None]
  - CSF GLUCOSE DECREASED [None]
  - CSF IMMUNOGLOBULIN DECREASED [None]
  - CSF MONONUCLEAR CELL COUNT INCREASED [None]
  - CSF PROTEIN INCREASED [None]
  - FUNGAL DNA TEST POSITIVE [None]
  - GENERAL PHYSICAL HEALTH DETERIORATION [None]
  - HEMIPARESIS [None]
  - IMMUNE RECONSTITUTION SYNDROME [None]
  - INFLAMMATION [None]
  - PROGRESSIVE MULTIFOCAL LEUKOENCEPHALOPATHY [None]
  - VIRAL LOAD INCREASED [None]
